FAERS Safety Report 19439326 (Version 4)
Quarter: 2022Q2

REPORT INFORMATION
  Report Type: Spontaneous
  Country: US (occurrence: US)
  Receive Date: 20210618
  Receipt Date: 20220524
  Transmission Date: 20220720
  Serious: Yes (Other)
  Sender: FDA-Public Use
  Company Number: US-PFIZER INC-2021679542

PATIENT
  Age: 57 Year
  Sex: Female

DRUGS (1)
  1. LYRICA [Suspect]
     Active Substance: PREGABALIN
     Dosage: UNK

REACTIONS (9)
  - Pneumonia [Unknown]
  - Diabetes mellitus [Unknown]
  - Spinal operation [Unknown]
  - Lower limb fracture [Not Recovered/Not Resolved]
  - Intentional product misuse [Unknown]
  - Chronic obstructive pulmonary disease [Unknown]
  - Neuralgia [Unknown]
  - Arthropathy [Unknown]
  - Osteoporosis [Unknown]
